FAERS Safety Report 9423431 (Version 1)
Quarter: 2013Q3

REPORT INFORMATION
  Report Type: Spontaneous
  Country: CA (occurrence: CA)
  Receive Date: 20130726
  Receipt Date: 20130726
  Transmission Date: 20140515
  Serious: Yes (Hospitalization, Other)
  Sender: FDA-Public Use
  Company Number: CA-BAXTER-2013BAX028671

PATIENT
  Age: 67 Year
  Sex: Male

DRUGS (4)
  1. DIANEAL PD4 SOLUTION WITH 1.5% DEXTROSE AND 2.5 MEQ/L CALCIUM [Suspect]
     Indication: PERITONEAL DIALYSIS
     Route: 033
     Dates: start: 201209
  2. DIANEAL PD4 SOLUTION WITH 1.5% DEXTROSE AND 2.5 MEQ/L CALCIUM [Suspect]
     Indication: RENAL FAILURE
  3. CALCIUM [Suspect]
     Indication: PROPHYLAXIS
     Route: 048
  4. CALCIUM [Suspect]
     Route: 048

REACTIONS (3)
  - Blood calcium increased [Recovering/Resolving]
  - Incoherent [Recovering/Resolving]
  - Abnormal behaviour [Recovering/Resolving]
